FAERS Safety Report 20781616 (Version 3)
Quarter: 2022Q2

REPORT INFORMATION
  Report Type: Spontaneous
  Country: US (occurrence: US)
  Receive Date: 20220504
  Receipt Date: 20220525
  Transmission Date: 20220721
  Serious: No
  Sender: FDA-Public Use
  Company Number: US-BIOGEN-2021BI01075774

PATIENT
  Age: 51 Year
  Sex: Female

DRUGS (10)
  1. VUMERITY [Suspect]
     Active Substance: DIROXIMEL FUMARATE
     Indication: Multiple sclerosis
     Dosage: TAKE 2 CAPSULES (462MG) BY MOUTH TWICE DAILY.
     Route: 048
     Dates: start: 20211110
  2. FIORICET [Concomitant]
     Active Substance: ACETAMINOPHEN\BUTALBITAL\CAFFEINE
     Route: 065
  3. LISINOPRIL [Concomitant]
     Active Substance: LISINOPRIL
     Route: 065
  4. ADVIL [Concomitant]
     Active Substance: IBUPROFEN
     Route: 065
  5. VITAMIN C [Concomitant]
     Active Substance: ASCORBIC ACID
     Route: 065
  6. VITAMIN D3 [Concomitant]
     Active Substance: CHOLECALCIFEROL
     Route: 065
  7. BACLOFEN [Concomitant]
     Active Substance: BACLOFEN
     Route: 065
  8. QUERCETIN [Concomitant]
     Active Substance: QUERCETIN
     Route: 065
  9. ASPIRIN [Concomitant]
     Active Substance: ASPIRIN
     Route: 065
  10. VITAMIN E [Concomitant]
     Active Substance: .ALPHA.-TOCOPHEROL
     Route: 065

REACTIONS (9)
  - Product dose omission in error [Unknown]
  - Constipation [Unknown]
  - Headache [Recovered/Resolved]
  - Vision blurred [Recovered/Resolved]
  - Anxiety [Recovered/Resolved]
  - Gastric disorder [Recovered/Resolved]
  - Nervousness [Recovered/Resolved]
  - Confusional state [Recovered/Resolved]
  - Flushing [Recovered/Resolved]

NARRATIVE: CASE EVENT DATE: 20211206
